FAERS Safety Report 9455229 (Version 1)
Quarter: 2013Q2

REPORT INFORMATION
  Report Type: Spontaneous
  Country: FR (occurrence: None)
  Receive Date: 20130507
  Receipt Date: 20130507
  Transmission Date: 20140414
  Serious: Yes (Other)
  Sender: FDA-Public Use
  Company Number: 221396

PATIENT
  Age: 18 Year
  Sex: Male

DRUGS (2)
  1. INNOHEP (TINZAPARIN SODIUM) [Suspect]
     Indication: THROMBOSIS PROPHYLAXIS
     Route: 058
     Dates: start: 20130302, end: 20130322
  2. PARACETAMOL (PARACETAMOL) [Concomitant]

REACTIONS (1)
  - Platelet count increased [None]
